FAERS Safety Report 8266721-8 (Version None)
Quarter: 2012Q2

REPORT INFORMATION
  Report Type: 
  Country: None (occurrence: None)
  Receive Date: 20120409
  Receipt Date: 20120329
  Transmission Date: 20120825
  Serious: Yes (Death, Hospitalization, Other)
  Sender: FDA-Public Use
  Company Number: US-BIOGENIDEC-2012BI002538

PATIENT
  Age: 54 Year
  Sex: Male

DRUGS (6)
  1. GABAPENTIN [Concomitant]
  2. ABILIFY [Concomitant]
  3. TYSABRI [Suspect]
     Indication: MULTIPLE SCLEROSIS
     Route: 042
     Dates: start: 20070227, end: 20111115
  4. AMPYRA [Concomitant]
     Indication: GAIT DISTURBANCE
  5. METHADONE HCL [Concomitant]
  6. FLUOXETINE HYDROCHLORIDE [Concomitant]
     Dates: start: 20111228

REACTIONS (6)
  - PNEUMONIA ASPIRATION [None]
  - CONVULSION [None]
  - MULTIPLE SCLEROSIS [None]
  - PROGRESSIVE MULTIFOCAL LEUKOENCEPHALOPATHY [None]
  - DYSARTHRIA [None]
  - APHASIA [None]
